FAERS Safety Report 7674233-5 (Version None)
Quarter: 2011Q3

REPORT INFORMATION
  Report Type: 
  Country: None (occurrence: None)
  Receive Date: 20110810
  Receipt Date: 20110801
  Transmission Date: 20111222
  Serious: Yes (Hospitalization, Other)
  Sender: FDA-Public Use
  Company Number: US-ELI_LILLY_AND_COMPANY-US201108001221

PATIENT
  Sex: Female

DRUGS (2)
  1. HUMALOG MIX 75/25 [Suspect]
     Indication: DIABETES MELLITUS
     Dosage: 30 U, BID
     Route: 065
  2. METFORMIN HCL [Concomitant]
     Dosage: UNK

REACTIONS (7)
  - STENT PLACEMENT [None]
  - THYROID OPERATION [None]
  - THROMBOSIS [None]
  - INCORRECT DOSE ADMINISTERED [None]
  - ARTHRALGIA [None]
  - BREAST CANCER [None]
  - BLOOD GLUCOSE INCREASED [None]
